FAERS Safety Report 23924602 (Version 1)
Quarter: 2024Q2

REPORT INFORMATION
  Report Type: Spontaneous
  Country: US (occurrence: US)
  Receive Date: 20240531
  Receipt Date: 20240531
  Transmission Date: 20240715
  Serious: Yes (Other)
  Sender: FDA-Public Use
  Company Number: US-STRIDES ARCOLAB LIMITED-2024SP006278

PATIENT
  Sex: Female

DRUGS (2)
  1. ETOPOSIDE [Suspect]
     Active Substance: ETOPOSIDE
     Indication: Small cell carcinoma of the cervix
     Dosage: UNK, CYCLICAL (4 CYCLES)
     Route: 065
  2. CISPLATIN [Suspect]
     Active Substance: CISPLATIN
     Indication: Small cell carcinoma of the cervix
     Dosage: UNK, CYCLICAL (4 CYCLES)
     Route: 065

REACTIONS (4)
  - Acute myeloid leukaemia [Recovered/Resolved]
  - RUNX1 gene mutation [Recovered/Resolved]
  - Gene mutation [Recovered/Resolved]
  - Off label use [Unknown]
